FAERS Safety Report 5285249-0 (Version None)
Quarter: 2007Q1

REPORT INFORMATION
  Report Type: 
  Country: None (occurrence: None)
  Receive Date: 20061229
  Receipt Date: 20060828
  Transmission Date: 20070707
  Serious: Yes (Other)
  Sender: FDA-Public Use
  Company Number: 2006UW17026

PATIENT
  Age: 77 Year
  Sex: Female
  Weight: 68.038 kg

DRUGS (10)
  1. CRESTOR [Suspect]
     Indication: BLOOD CHOLESTEROL INCREASED
     Dosage: 20 MG QD PO
     Route: 048
     Dates: start: 20060501
  2. ACTOS [Concomitant]
  3. GLIPIZIDE [Concomitant]
  4. ALTACE [Concomitant]
  5. ATENOLOL [Concomitant]
  6. THYROID SUPPLEMENT [Concomitant]
  7. WATER PILLS [Concomitant]
  8. FISH OIL [Concomitant]
  9. TRICOR [Concomitant]
  10. ALLOPURINOL [Concomitant]

REACTIONS (3)
  - BLOOD TRIGLYCERIDES INCREASED [None]
  - DRUG INEFFECTIVE [None]
  - HIGH DENSITY LIPOPROTEIN DECREASED [None]
